FAERS Safety Report 23949115 (Version 2)
Quarter: 2024Q2

REPORT INFORMATION
  Report Type: Spontaneous
  Country: US (occurrence: US)
  Receive Date: 20240607
  Receipt Date: 20240608
  Transmission Date: 20240716
  Serious: Yes (Other)
  Sender: FDA-Public Use
  Company Number: US-ABBVIE-5789280

PATIENT
  Sex: Female

DRUGS (1)
  1. RESTASIS [Suspect]
     Active Substance: CYCLOSPORINE
     Indication: Dry eye
     Dosage: FORM STRENGTH- CYCLOSPORINE 0.5MG/ML EML
     Route: 047

REACTIONS (3)
  - Keratomileusis [Unknown]
  - Keratitis [Unknown]
  - Post procedural complication [Unknown]
